FAERS Safety Report 25726794 (Version 1)
Quarter: 2025Q3

REPORT INFORMATION
  Report Type: Spontaneous
  Country: US (occurrence: None)
  Receive Date: 20250825
  Receipt Date: 20250825
  Transmission Date: 20251021
  Serious: Yes (Hospitalization)
  Sender: FDA-CTU
  Company Number: None

PATIENT
  Sex: Female

DRUGS (1)
  1. APIXABAN [Suspect]
     Active Substance: APIXABAN

REACTIONS (4)
  - Deep vein thrombosis [None]
  - Drug ineffective [None]
  - Product prescribing error [None]
  - Drug level below therapeutic [None]

NARRATIVE: CASE EVENT DATE: 20230316
